FAERS Safety Report 14900287 (Version 4)
Quarter: 2018Q3

REPORT INFORMATION
  Report Type: Report from Study
  Country: JP (occurrence: JP)
  Receive Date: 20180516
  Receipt Date: 20180706
  Transmission Date: 20181010
  Serious: Yes (Hospitalization)
  Sender: FDA-Public Use
  Company Number: JP-ROCHE-2029235

PATIENT
  Age: 64 Year
  Sex: Male
  Weight: 64.9 kg

DRUGS (17)
  1. ACETAMINOPHEN. [Concomitant]
     Active Substance: ACETAMINOPHEN
     Indication: URINARY TRACT INFECTION
     Route: 048
     Dates: start: 20171030, end: 20171102
  2. LEVOFLOXACIN HEMIHYDRATE [Concomitant]
     Active Substance: LEVOFLOXACIN
     Indication: URINARY TRACT INFECTION
     Route: 048
     Dates: start: 20171102, end: 20171107
  3. CEFCAPENE PIVOXIL HYDROCHLORIDE HYDRATE [Concomitant]
     Active Substance: CEFCAPENE PIVOXIL HYDROCHLORIDE HYDRATE
     Indication: PROPHYLAXIS
     Route: 048
     Dates: start: 20171013, end: 20171016
  4. ATEZOLIZUMAB. [Suspect]
     Active Substance: ATEZOLIZUMAB
     Indication: TRANSITIONAL CELL CARCINOMA
     Dosage: MOST RECENT DOSE PRIOR TO SAE: 07/NOV/2017
     Route: 042
     Dates: start: 20170627
  5. SCOPOLAMINE BUTYLBROMIDE [Concomitant]
     Active Substance: SCOPOLAMINE
     Indication: ABDOMINAL PAIN
     Route: 048
     Dates: start: 20171124, end: 20171125
  6. TRANEXAMIC ACID. [Concomitant]
     Active Substance: TRANEXAMIC ACID
     Indication: HAEMATURIA
     Route: 048
     Dates: start: 20171125
  7. AMLODIPINE BESILATE [Concomitant]
     Active Substance: AMLODIPINE BESYLATE
     Indication: HYPERTENSION
     Route: 048
  8. ACETAMINOPHEN. [Concomitant]
     Active Substance: ACETAMINOPHEN
     Route: 048
     Dates: start: 20171125
  9. ACETAMINOPHEN. [Concomitant]
     Active Substance: ACETAMINOPHEN
     Route: 048
     Dates: start: 20171125
  10. FAMOTIDINE. [Concomitant]
     Active Substance: FAMOTIDINE
     Indication: GASTRITIS PROPHYLAXIS
     Route: 042
     Dates: start: 20171125, end: 20171125
  11. MAGNESIUM OXIDE. [Concomitant]
     Active Substance: MAGNESIUM OXIDE
     Route: 048
  12. ACETAMINOPHEN. [Concomitant]
     Active Substance: ACETAMINOPHEN
     Indication: ABDOMINAL PAIN
     Route: 048
     Dates: start: 20171116, end: 20171119
  13. LEVOFLOXACIN HEMIHYDRATE [Concomitant]
     Active Substance: LEVOFLOXACIN
     Route: 048
     Dates: start: 20171118, end: 20171119
  14. FEBUXOSTAT. [Concomitant]
     Active Substance: FEBUXOSTAT
     Indication: HYPERURICAEMIA
     Route: 048
  15. ACETAMINOPHEN. [Concomitant]
     Active Substance: ACETAMINOPHEN
     Indication: INFLUENZA LIKE ILLNESS
     Route: 048
     Dates: start: 20171008, end: 20171008
  16. ACETAMINOPHEN. [Concomitant]
     Active Substance: ACETAMINOPHEN
     Route: 048
     Dates: start: 20171120, end: 20171122
  17. ACETAMINOPHEN. [Concomitant]
     Active Substance: ACETAMINOPHEN
     Route: 042
     Dates: start: 20171125, end: 20171125

REACTIONS (3)
  - Tubulointerstitial nephritis [Not Recovered/Not Resolved]
  - Pyelonephritis [Recovering/Resolving]
  - Renal injury [Not Recovered/Not Resolved]

NARRATIVE: CASE EVENT DATE: 20171120
